FAERS Safety Report 5595774-0 (Version None)
Quarter: 2008Q1

REPORT INFORMATION
  Report Type: 
  Country: None (occurrence: None)
  Receive Date: 20080118
  Receipt Date: 20080111
  Transmission Date: 20080703
  Serious: Yes (Other)
  Sender: FDA-Public Use
  Company Number: B0500995A

PATIENT
  Age: 7 Year
  Sex: Female
  Weight: 25 kg

DRUGS (8)
  1. RELENZA [Suspect]
     Indication: INFLUENZA
     Dosage: 10MG TWICE PER DAY
     Route: 055
     Dates: start: 20071211, end: 20071212
  2. SINGULAIR [Concomitant]
     Dosage: 5MG PER DAY
     Route: 048
  3. HOKUNALIN [Concomitant]
     Dosage: 1MG PER DAY
     Route: 062
  4. FLUTIDE [Concomitant]
     Dosage: 100MCG TWICE PER DAY
     Route: 055
  5. MUCODYNE [Concomitant]
     Route: 048
  6. MUCOSOLVAN [Concomitant]
     Route: 048
  7. ZITHROMAX [Concomitant]
     Dosage: 250MG PER DAY
     Route: 048
  8. ASVERIN [Concomitant]
     Route: 048

REACTIONS (4)
  - ABNORMAL BEHAVIOUR [None]
  - AGITATION [None]
  - CRYING [None]
  - HALLUCINATION [None]
